FAERS Safety Report 7821573-2 (Version None)
Quarter: 2011Q4

REPORT INFORMATION
  Report Type: 
  Country: None (occurrence: None)
  Receive Date: 20111018
  Receipt Date: 20110118
  Transmission Date: 20120403
  Serious: No
  Sender: FDA-Public Use
  Company Number: US-ASTRAZENECA-2010SE31316

PATIENT
  Age: 65 Year
  Sex: Male
  Weight: 117.9 kg

DRUGS (10)
  1. LASIX [Concomitant]
  2. MORPHINE SULFATE [Concomitant]
  3. XANAX [Concomitant]
  4. SYMBICORT [Suspect]
     Dosage: 160-4.5MCG TWO TIMES A DAY
     Route: 055
     Dates: start: 20090101
  5. ACTOS [Concomitant]
  6. PRILOSEC [Concomitant]
  7. AMLODIPINE [Concomitant]
  8. PROZAC [Concomitant]
  9. SYMBICORT [Suspect]
     Dosage: 160-4.5MCG TWO TIMES A DAY
     Route: 055
     Dates: start: 20090101
  10. ASPIRIN [Concomitant]

REACTIONS (2)
  - INCORRECT DOSE ADMINISTERED [None]
  - PSYCHOMOTOR HYPERACTIVITY [None]
